FAERS Safety Report 6785143-X (Version None)
Quarter: 2010Q2

REPORT INFORMATION
  Report Type: 
  Country: None (occurrence: None)
  Receive Date: 20100622
  Receipt Date: 20100614
  Transmission Date: 20101027
  Serious: Yes (Other)
  Sender: FDA-Public Use
  Company Number: CN-ROCHE-710248

PATIENT

DRUGS (1)
  1. BEVACIZUMAB [Suspect]
     Route: 031

REACTIONS (1)
  - IRIS NEOVASCULARISATION [None]
